FAERS Safety Report 17701200 (Version 1)
Quarter: 2020Q2

REPORT INFORMATION
  Report Type: Spontaneous
  Country: AU (occurrence: AU)
  Receive Date: 20200423
  Receipt Date: 20200423
  Transmission Date: 20200714
  Serious: Yes (Other)
  Sender: FDA-Public Use
  Company Number: NVSC2020AU107318

PATIENT
  Age: 48 Year
  Sex: Female

DRUGS (9)
  1. OXYBUTYNIN HYDROCHLORIDE [Suspect]
     Active Substance: OXYBUTYNIN CHLORIDE
     Indication: PRODUCT USED FOR UNKNOWN INDICATION
     Route: 065
  2. GILENYA [Suspect]
     Active Substance: FINGOLIMOD HYDROCHLORIDE
     Indication: PRODUCT USED FOR UNKNOWN INDICATION
     Route: 065
  3. BACLOFEN. [Suspect]
     Active Substance: BACLOFEN
     Indication: PRODUCT USED FOR UNKNOWN INDICATION
     Route: 065
  4. ERGOCALCIFEROL. [Suspect]
     Active Substance: ERGOCALCIFEROL
     Indication: PRODUCT USED FOR UNKNOWN INDICATION
     Route: 065
  5. PERINDOPRIL [Suspect]
     Active Substance: PERINDOPRIL
     Indication: PRODUCT USED FOR UNKNOWN INDICATION
     Route: 065
  6. EFEXOR [Suspect]
     Active Substance: VENLAFAXINE HYDROCHLORIDE
     Indication: PRODUCT USED FOR UNKNOWN INDICATION
     Route: 065
  7. DICLOFENAC SODIUM. [Suspect]
     Active Substance: DICLOFENAC SODIUM
     Indication: PRODUCT USED FOR UNKNOWN INDICATION
     Route: 065
  8. EVENING PRIMROSE OIL [Suspect]
     Active Substance: EVENING PRIMROSE OIL\HERBALS
     Indication: PRODUCT USED FOR UNKNOWN INDICATION
     Route: 065
  9. NATURAL FISH OIL [Suspect]
     Active Substance: FISH OIL
     Indication: PRODUCT USED FOR UNKNOWN INDICATION
     Route: 065

REACTIONS (18)
  - Arrhythmia [Unknown]
  - Dry eye [Unknown]
  - White blood cell count decreased [Unknown]
  - Alopecia [Unknown]
  - Burning sensation [Unknown]
  - Migraine [Unknown]
  - Skin hyperpigmentation [Unknown]
  - Lymphocyte count decreased [Unknown]
  - Back pain [Unknown]
  - Alanine aminotransferase increased [Unknown]
  - Oedema [Unknown]
  - Basophil count decreased [Unknown]
  - Musculoskeletal chest pain [Unknown]
  - Gamma-glutamyltransferase increased [Unknown]
  - Hypertension [Unknown]
  - Weight increased [Unknown]
  - Arthralgia [Unknown]
  - Back injury [Unknown]
